FAERS Safety Report 9441458 (Version 1)
Quarter: 2013Q3

REPORT INFORMATION
  Report Type: Spontaneous
  Country: US (occurrence: US)
  Receive Date: 20130805
  Receipt Date: 20130805
  Transmission Date: 20140515
  Serious: Yes (Other)
  Sender: FDA-Public Use
  Company Number: US-009507513-1307USA017271

PATIENT
  Sex: Female

DRUGS (1)
  1. COPPERTONE ULTRAGUARD LOTION SPF 50 [Suspect]
     Indication: PRODUCT USED FOR UNKNOWN INDICATION
     Dosage: UNK
     Route: 061

REACTIONS (3)
  - Neoplasm malignant [Not Recovered/Not Resolved]
  - Burns second degree [Unknown]
  - Product adhesion issue [Recovered/Resolved]
